FAERS Safety Report 9735568 (Version 1)
Quarter: 2013Q4

REPORT INFORMATION
  Report Type: Spontaneous
  Country: US (occurrence: US)
  Receive Date: 20131206
  Receipt Date: 20131206
  Transmission Date: 20140711
  Serious: No
  Sender: FDA-Public Use
  Company Number: US-GILEAD-2009-0023920

PATIENT
  Sex: Female
  Weight: 51.71 kg

DRUGS (17)
  1. LETAIRIS [Suspect]
     Indication: PULMONARY ARTERIAL HYPERTENSION
     Route: 048
     Dates: start: 20080728
  2. OXYGEN [Concomitant]
  3. DIGOXIN [Concomitant]
  4. ACYCLOVIR [Concomitant]
  5. CLINDAMYCIN HCL [Concomitant]
  6. COREG [Concomitant]
  7. LASIX [Concomitant]
  8. SYNTHROID [Concomitant]
  9. NEURONTIN [Concomitant]
  10. POTASSIUM CHLORIDE [Concomitant]
  11. ADULT LOW DOSE ASA [Concomitant]
  12. OCUVITE EXTRA [Concomitant]
  13. COLACE [Concomitant]
  14. MAGNESIUM-OXIDE [Concomitant]
  15. VITAMIN B-12 [Concomitant]
  16. VITAMIN E [Concomitant]
  17. A-Z MULTIVITAMIN [Concomitant]

REACTIONS (2)
  - Swelling [Unknown]
  - Weight increased [Unknown]
